FAERS Safety Report 10298426 (Version 1)
Quarter: 2014Q3

REPORT INFORMATION
  Report Type: Spontaneous
  Country: JP (occurrence: JP)
  Receive Date: 20140711
  Receipt Date: 20140711
  Transmission Date: 20150326
  Serious: Yes (Other)
  Sender: FDA-Public Use
  Company Number: JP-PFIZER INC-2014191714

PATIENT
  Age: 52 Year
  Sex: Female

DRUGS (1)
  1. SOLU-MEDROL [Suspect]
     Active Substance: METHYLPREDNISOLONE SODIUM SUCCINATE
     Indication: PHARYNGITIS
     Dosage: 125 MG, DAILY
     Route: 042

REACTIONS (1)
  - Duodenal ulcer haemorrhage [Recovering/Resolving]
